FAERS Safety Report 10141787 (Version 1)
Quarter: 2014Q2

REPORT INFORMATION
  Report Type: Report from Study
  Country: US (occurrence: US)
  Receive Date: 20140429
  Receipt Date: 20140429
  Transmission Date: 20141212
  Serious: Yes (Life-Threatening, Hospitalization, Other)
  Sender: FDA-Public Use
  Company Number: US-MYLANLABS-2014S1006815

PATIENT
  Age: 50 Year
  Sex: Female
  Weight: 52 kg

DRUGS (9)
  1. CLOZAPINE TABLETS [Suspect]
     Indication: SCHIZOPHRENIA, PARANOID TYPE
     Route: 048
     Dates: start: 201307, end: 20140208
  2. ATORVASTATIN [Concomitant]
     Indication: HYPERLIPIDAEMIA
  3. CELEXA [Concomitant]
  4. SYNTHROID [Concomitant]
     Indication: HYPOTHYROIDISM
  5. NEXIUM [Concomitant]
     Indication: GASTROOESOPHAGEAL REFLUX DISEASE
  6. LAMICTAL [Concomitant]
  7. VITAMIN D [Concomitant]
  8. WELLBUTRIN SR [Concomitant]
  9. ASPIRIN [Concomitant]

REACTIONS (4)
  - Cardiomyopathy [Recovered/Resolved]
  - Myocarditis [Recovered/Resolved]
  - Cardiac failure congestive [Recovered/Resolved]
  - Fall [Recovered/Resolved]
